FAERS Safety Report 25039366 (Version 2)
Quarter: 2025Q1

REPORT INFORMATION
  Report Type: Spontaneous
  Country: US (occurrence: US)
  Receive Date: 20250305
  Receipt Date: 20250317
  Transmission Date: 20250408
  Serious: Yes (Other)
  Sender: TEVA
  Company Number: US-TEVA-VS-3305064

PATIENT
  Age: 59 Year
  Sex: Female

DRUGS (5)
  1. CLOBETASOL [Suspect]
     Active Substance: CLOBETASOL
     Indication: Eosinophilic cellulitis
     Route: 061
  2. CETIRIZINE [Suspect]
     Active Substance: CETIRIZINE HYDROCHLORIDE
     Indication: Eosinophilic cellulitis
     Route: 065
  3. DUPILUMAB [Suspect]
     Active Substance: DUPILUMAB
     Indication: Dermatitis atopic
     Route: 065
  4. TACROLIMUS [Suspect]
     Active Substance: TACROLIMUS
     Indication: Eosinophilic cellulitis
     Route: 061
  5. PREDNISONE [Concomitant]
     Active Substance: PREDNISONE
     Indication: Eosinophilic cellulitis
     Route: 065

REACTIONS (2)
  - Drug ineffective [Unknown]
  - Arthritis [Unknown]
